FAERS Safety Report 24155476 (Version 1)
Quarter: 2024Q3

REPORT INFORMATION
  Report Type: Spontaneous
  Country: US (occurrence: US)
  Receive Date: 20240731
  Receipt Date: 20240731
  Transmission Date: 20241017
  Serious: Yes (Death)
  Sender: TEVA
  Company Number: US-TEVA-VS-3223219

PATIENT
  Age: 73 Year
  Sex: Female

DRUGS (1)
  1. AUSTEDO [Suspect]
     Active Substance: DEUTETRABENAZINE
     Indication: Tardive dyskinesia
     Dosage: ONE TABLET OF THE AUSTEDO 6 MG AND ONE TABLET OF AUSTEDO 9 MG TOGETHER TWICE A DAY
     Route: 065

REACTIONS (1)
  - Death [Fatal]
